FAERS Safety Report 13740625 (Version 2)
Quarter: 2017Q3

REPORT INFORMATION
  Report Type: Spontaneous
  Country: US (occurrence: US)
  Receive Date: 20170711
  Receipt Date: 20170712
  Transmission Date: 20171127
  Serious: Yes (Other)
  Sender: FDA-Public Use
  Company Number: US-PFIZER INC-2017296649

PATIENT
  Age: 45 Year
  Sex: Female
  Weight: 63.5 kg

DRUGS (1)
  1. CELEBREX [Suspect]
     Active Substance: CELECOXIB
     Indication: ARTHRITIS
     Dosage: 200 MG, 1X/DAY
     Dates: start: 201101, end: 201401

REACTIONS (11)
  - Uterine leiomyoma [Recovered/Resolved]
  - Arthritis [Unknown]
  - Condition aggravated [Unknown]
  - Intentional product misuse [Unknown]
  - Calcinosis [Not Recovered/Not Resolved]
  - Nodule [Not Recovered/Not Resolved]
  - Joint injury [Not Recovered/Not Resolved]
  - Abdominal pain [Recovered/Resolved]
  - Abdominal distension [Recovered/Resolved]
  - Ulcer [Recovered/Resolved]
  - Arthralgia [Recovering/Resolving]

NARRATIVE: CASE EVENT DATE: 201307
